FAERS Safety Report 25041361 (Version 1)
Quarter: 2025Q1

REPORT INFORMATION
  Report Type: Spontaneous
  Country: US (occurrence: None)
  Receive Date: 20250305
  Receipt Date: 20250305
  Transmission Date: 20250408
  Serious: No
  Sender: FDA-CTU
  Company Number: None

PATIENT
  Age: 44 Year
  Sex: Female
  Weight: 84.6 kg

DRUGS (9)
  1. MOUNJARO [Suspect]
     Active Substance: TIRZEPATIDE
     Indication: Glucose tolerance impaired
     Route: 050
     Dates: start: 20240320, end: 20250219
  2. MOUNJARO [Suspect]
     Active Substance: TIRZEPATIDE
     Indication: Weight decreased
  3. moujaro [Concomitant]
  4. METFORMIN [Concomitant]
     Active Substance: METFORMIN HYDROCHLORIDE
  5. VYVANSE [Concomitant]
     Active Substance: LISDEXAMFETAMINE DIMESYLATE
  6. BUPROPION [Concomitant]
     Active Substance: BUPROPION
  7. ESCITALOPRAM [Concomitant]
     Active Substance: ESCITALOPRAM OXALATE
  8. VITAMINS [Concomitant]
     Active Substance: VITAMINS
  9. LIQUID COLLAGEN [Concomitant]
     Active Substance: MINOXIDIL

REACTIONS (2)
  - Flatulence [None]
  - Pain [None]

NARRATIVE: CASE EVENT DATE: 20250304
